FAERS Safety Report 8608475 (Version 2)
Quarter: 2013Q3

REPORT INFORMATION
  Report Type: Spontaneous
  Country: US (occurrence: US)
  Receive Date: 20120611
  Receipt Date: 20130806
  Transmission Date: 20140515
  Serious: Yes (Other)
  Sender: FDA-Public Use
  Company Number: US-ROCHE-788876

PATIENT
  Age: 13 Year
  Sex: Male
  Weight: 79.45 kg

DRUGS (6)
  1. ACCUTANE [Suspect]
     Indication: ACNE
     Route: 065
     Dates: start: 199812, end: 199905
  2. ACCUTANE [Suspect]
     Route: 065
     Dates: start: 1999, end: 2000
  3. PURINETHOL [Concomitant]
     Route: 048
  4. MERCAPTOPURINE [Concomitant]
  5. CIMZIA [Concomitant]
  6. REMICADE [Concomitant]

REACTIONS (9)
  - Crohn^s disease [Unknown]
  - Inflammatory bowel disease [Unknown]
  - Emotional distress [Unknown]
  - Intestinal obstruction [Unknown]
  - Lip dry [Unknown]
  - Epistaxis [Unknown]
  - Dry eye [Unknown]
  - Night blindness [Unknown]
  - Blood triglycerides increased [Unknown]
